FAERS Safety Report 21825494 (Version 1)
Quarter: 2023Q1

REPORT INFORMATION
  Report Type: Spontaneous
  Country: US (occurrence: None)
  Receive Date: 20230105
  Receipt Date: 20230105
  Transmission Date: 20230418
  Serious: No
  Sender: FDA-Public Use
  Company Number: None

PATIENT
  Age: 80 Year
  Sex: Male
  Weight: 88.9 kg

DRUGS (9)
  1. ROCKLATAN [Suspect]
     Active Substance: LATANOPROST\NETARSUDIL MESYLATE
     Indication: Glaucoma
     Dates: start: 20221213, end: 20221218
  2. OLMESARTAN [Concomitant]
     Active Substance: OLMESARTAN
  3. PREDNISONE [Concomitant]
     Active Substance: PREDNISONE
  4. SIMVASTATIN [Concomitant]
     Active Substance: SIMVASTATIN
  5. METFORMIN [Concomitant]
     Active Substance: METFORMIN HYDROCHLORIDE
  6. DORZOLAMIDE [Concomitant]
     Active Substance: DORZOLAMIDE
  7. LATANAPROST EYE DROPS [Concomitant]
  8. TAMSULOSIN HYDROCHLORIDE [Concomitant]
     Active Substance: TAMSULOSIN HYDROCHLORIDE
  9. VITAMIN 3 [Concomitant]

REACTIONS (1)
  - Epistaxis [None]
